FAERS Safety Report 25393739 (Version 1)
Quarter: 2025Q2

REPORT INFORMATION
  Report Type: Spontaneous
  Country: US (occurrence: US)
  Receive Date: 20250604
  Receipt Date: 20250604
  Transmission Date: 20250717
  Serious: Yes (Other)
  Sender: NOVARTIS
  Company Number: US-002147023-NVSC2025US086441

PATIENT
  Sex: Male

DRUGS (1)
  1. PLUVICTO [Suspect]
     Active Substance: LUTETIUM LU-177 VIPIVOTIDE TETRAXETAN
     Indication: Prostatic specific antigen increased
     Route: 065
     Dates: start: 202302, end: 202311

REACTIONS (4)
  - Myelosuppression [Unknown]
  - Musculoskeletal stiffness [Unknown]
  - Full blood count decreased [Unknown]
  - Peripheral swelling [Recovered/Resolved]
